FAERS Safety Report 9496935 (Version 2)
Quarter: 2013Q3

REPORT INFORMATION
  Report Type: Spontaneous
  Country: US (occurrence: US)
  Receive Date: 20130904
  Receipt Date: 20130904
  Transmission Date: 20140515
  Serious: No
  Sender: FDA-Public Use
  Company Number: US-AMGEN-USASP2013048993

PATIENT
  Age: 53 Year
  Sex: Male

DRUGS (8)
  1. ENBREL [Suspect]
     Indication: PSORIATIC ARTHROPATHY
     Dosage: 50 MG, QWK
     Route: 065
     Dates: start: 20040501
  2. ENBREL [Suspect]
     Indication: PSORIASIS
  3. NABUMETONE [Concomitant]
     Dosage: 500 MG, QD
     Route: 048
  4. NEXIUM                             /01479303/ [Concomitant]
     Dosage: 40 MG, QD
     Route: 048
  5. FLUNISOLIDE [Concomitant]
     Dosage: 0.025 %, AS NECESSARY
  6. LORAZEPAM [Concomitant]
     Dosage: 1 MG, QD
     Route: 048
  7. CLARITIN                           /00413701/ [Concomitant]
     Dosage: 10 MG, QD
     Route: 048
  8. GUAIFENESIN [Concomitant]
     Dosage: 400 MG, QD
     Route: 048

REACTIONS (3)
  - Melanocytic naevus [Not Recovered/Not Resolved]
  - Sinusitis [Recovered/Resolved]
  - Psoriasis [Not Recovered/Not Resolved]
